FAERS Safety Report 20781771 (Version 1)
Quarter: 2022Q2

REPORT INFORMATION
  Report Type: Spontaneous
  Country: GB (occurrence: GB)
  Receive Date: 20220504
  Receipt Date: 20220504
  Transmission Date: 20220720
  Serious: Yes (Disabling)
  Sender: FDA-Public Use
  Company Number: GB-MHRA-MED-202203311751503960-98OQI

PATIENT
  Sex: Female
  Weight: 67 kg

DRUGS (5)
  1. MIRTAZAPINE [Suspect]
     Active Substance: MIRTAZAPINE
     Indication: Depression
     Dosage: UNK (INITIALLY 15MG AT NIGHT WEEK 1, THEN 30MG AT NIGHT) (ADDITIONAL INFO: ROUTE)
     Dates: start: 20220310
  2. BISACODYL [Concomitant]
     Active Substance: BISACODYL
     Dosage: UNK (ADDITIONAL INFO: ROUTE)
     Dates: start: 2012
  3. CITALOPRAM [Concomitant]
     Active Substance: CITALOPRAM HYDROBROMIDE
     Indication: Depression
     Dosage: UNK (ADDITIONAL INFO: ROUTE)
     Dates: start: 2010, end: 20220326
  4. DILTIAZEM [Concomitant]
     Active Substance: DILTIAZEM
     Dosage: UNK (ADDITIONAL INFO: ROUTE)
     Dates: start: 2022
  5. FYBOGEL [Concomitant]
     Active Substance: HERBALS\PLANTAGO OVATA SEED
     Dosage: UNK (ADDITIONAL INFO: ROUTE)
     Dates: start: 2012

REACTIONS (15)
  - Dizziness [Not Recovered/Not Resolved]
  - Nausea [Not Recovered/Not Resolved]
  - Vision blurred [Not Recovered/Not Resolved]
  - Dyspnoea [Recovering/Resolving]
  - Agitation [Unknown]
  - Sensory processing disorder [Not Recovered/Not Resolved]
  - Thinking abnormal [Recovering/Resolving]
  - Dyspepsia [Not Recovered/Not Resolved]
  - Dyspepsia [Not Recovered/Not Resolved]
  - Violence-related symptom [Not Recovered/Not Resolved]
  - Oropharyngeal pain [Not Recovered/Not Resolved]
  - Insomnia [Not Recovered/Not Resolved]
  - Feeling abnormal [Not Recovered/Not Resolved]
  - Feeling drunk [Not Recovered/Not Resolved]
  - Somnolence [Recovered/Resolved]

NARRATIVE: CASE EVENT DATE: 20220101
